FAERS Safety Report 13085951 (Version 2)
Quarter: 2017Q1

REPORT INFORMATION
  Report Type: Spontaneous
  Country: US (occurrence: US)
  Receive Date: 20170104
  Receipt Date: 20170126
  Transmission Date: 20170428
  Serious: Yes (Hospitalization, Other)
  Sender: FDA-Public Use
  Company Number: US-PFIZER INC-2017000853

PATIENT
  Sex: Female

DRUGS (1)
  1. CELEBREX [Suspect]
     Active Substance: CELECOXIB
     Dosage: UNK

REACTIONS (10)
  - Cholelithiasis [Unknown]
  - Pancreatic disorder [Unknown]
  - Hepatic function abnormal [Unknown]
  - Arthralgia [Unknown]
  - Memory impairment [Unknown]
  - Vomiting [Unknown]
  - Pain [Unknown]
  - Cardiac arrest [Unknown]
  - Yellow skin [Unknown]
  - Hypoacusis [Unknown]
